FAERS Safety Report 26055020 (Version 1)
Quarter: 2025Q4

REPORT INFORMATION
  Report Type: Spontaneous
  Country: EU (occurrence: EU)
  Receive Date: 20251117
  Receipt Date: 20251117
  Transmission Date: 20260117
  Serious: Yes (Other)
  Sender: SANDOZ
  Company Number: None

PATIENT
  Age: 39 Year
  Sex: Female

DRUGS (8)
  1. ALCOHOL [Suspect]
     Active Substance: ALCOHOL
     Indication: Sedation
     Dosage: UP TO 2 BOTTLES OF WINE PER DAY; CONSUMES WHEN NO OTHER SUBSTANCES ARE AVAILABLE
     Route: 048
     Dates: start: 2023
  2. BROMAZEPAM [Suspect]
     Active Substance: BROMAZEPAM
     Indication: Sedation
     Dosage: UNK, QW
     Route: 048
     Dates: start: 2025
  3. COCAINE [Suspect]
     Active Substance: COCAINE
     Indication: Sedation
     Dosage: UP TO 3 G/DAY; BY SMOKING; USED FOR 2-3 WEEKS
     Route: 065
     Dates: start: 2017
  4. COCAINE [Suspect]
     Active Substance: COCAINE
     Indication: Euphoric mood
  5. OLANZAPINE [Suspect]
     Active Substance: OLANZAPINE
     Indication: Sedation
     Dosage: UNK
     Route: 065
  6. QUETIAPINE [Suspect]
     Active Substance: QUETIAPINE
     Indication: Sedation
     Dosage: } - 3 TABLETS/24 HOURS; ONE EPISODE DESCRIBED AS 2 TABLETS IN THE EVENING THEN 1 TABLET AT 6 A.M.
     Route: 048
     Dates: start: 2018
  7. QUETIAPINE [Suspect]
     Active Substance: QUETIAPINE
     Indication: Anxiolytic therapy
  8. VENLAFAXINE [Suspect]
     Active Substance: VENLAFAXINE HYDROCHLORIDE
     Indication: Sedation
     Dosage: UNK
     Route: 065

REACTIONS (4)
  - Drug use disorder [Not Recovered/Not Resolved]
  - Drug abuse [Unknown]
  - Overdose [Unknown]
  - Off label use [Unknown]
